FAERS Safety Report 8289798-2 (Version None)
Quarter: 2012Q2

REPORT INFORMATION
  Report Type: 
  Country: None (occurrence: None)
  Receive Date: 20120417
  Receipt Date: 20120415
  Transmission Date: 20120825
  Serious: No
  Sender: FDA-Public Use
  Company Number: US-PFIZER INC-2012093396

PATIENT
  Sex: Female

DRUGS (7)
  1. CHANTIX [Suspect]
     Dosage: 0.5 MG, 2X/DAY
     Route: 048
     Dates: start: 20120401
  2. NAPROXEN [Concomitant]
     Indication: BUNION
     Dosage: UNK
  3. CHANTIX [Suspect]
     Indication: SMOKING CESSATION THERAPY
     Dosage: 0.5 MG, 1X/DAY
     Route: 048
     Dates: start: 20120409, end: 20120401
  4. FLECTOR [Concomitant]
     Indication: BUNION
     Dosage: UNK
     Route: 062
  5. LEXAPRO [Concomitant]
     Indication: ABDOMINAL ADHESIONS
     Dosage: UNK
  6. CRESTOR [Concomitant]
     Indication: BLOOD CHOLESTEROL INCREASED
     Dosage: UNK
  7. TOVIAZ [Concomitant]
     Indication: BLADDER DISORDER
     Dosage: UNK

REACTIONS (4)
  - ASTHENIA [None]
  - INSOMNIA [None]
  - FATIGUE [None]
  - DIARRHOEA [None]
